FAERS Safety Report 6893024-6 (Version None)
Quarter: 2010Q3

REPORT INFORMATION
  Report Type: 
  Country: None (occurrence: None)
  Receive Date: 20100731
  Receipt Date: 20090121
  Transmission Date: 20110219
  Serious: No
  Sender: FDA-Public Use
  Company Number: US-PFIZER INC-2008075066

PATIENT
  Sex: Male
  Weight: 111 kg

DRUGS (4)
  1. CAVERJECT [Suspect]
     Indication: ERECTILE DYSFUNCTION
     Dates: start: 20070101
  2. MORPHINE [Concomitant]
  3. MUSCLE RELAXANTS [Concomitant]
  4. ANALGESICS [Concomitant]

REACTIONS (6)
  - DRUG DISPENSING ERROR [None]
  - DRUG INEFFECTIVE [None]
  - INJECTION SITE EXTRAVASATION [None]
  - PENILE PAIN [None]
  - PENIS DISORDER [None]
  - WRONG TECHNIQUE IN DRUG USAGE PROCESS [None]
